FAERS Safety Report 11911951 (Version 1)
Quarter: 2016Q1

REPORT INFORMATION
  Report Type: Spontaneous
  Country: US (occurrence: US)
  Receive Date: 20160112
  Receipt Date: 20160112
  Transmission Date: 20160526
  Serious: Yes (Hospitalization)
  Sender: FDA-Public Use
  Company Number: US-PFIZER INC-2016006298

PATIENT
  Sex: Male

DRUGS (9)
  1. VASOPRIL [Concomitant]
     Active Substance: FOSINOPRIL
  2. INSULIN [Concomitant]
     Active Substance: INSULIN NOS
  3. COREG [Concomitant]
     Active Substance: CARVEDILOL
     Dosage: 25 MG
  4. LYRICA [Suspect]
     Active Substance: PREGABALIN
     Indication: WOUND
     Dosage: 150 MG, 3X/DAY
     Route: 048
     Dates: start: 2013, end: 201512
  5. CREON [Concomitant]
     Active Substance: PANCRELIPASE AMYLASE\PANCRELIPASE LIPASE\PANCRELIPASE PROTEASE
     Indication: ENZYME ABNORMALITY
  6. VERAPAMIL [Concomitant]
     Active Substance: VERAPAMIL HYDROCHLORIDE
     Dosage: 40 MG, 2X/DAY
  7. NORVASC [Concomitant]
     Active Substance: AMLODIPINE BESYLATE
     Dosage: 10 MG, 1X/DAY
  8. NPH INSULIN [Concomitant]
     Active Substance: INSULIN BEEF
  9. LISINOPRIL. [Concomitant]
     Active Substance: LISINOPRIL
     Dosage: 30 MG, 1X/DAY

REACTIONS (2)
  - Localised infection [Unknown]
  - Pain [Unknown]
